FAERS Safety Report 13845995 (Version 1)
Quarter: 2017Q3

REPORT INFORMATION
  Report Type: Spontaneous
  Country: CN (occurrence: CN)
  Receive Date: 20170808
  Receipt Date: 20170808
  Transmission Date: 20171127
  Serious: Yes (Hospitalization, Other)
  Sender: FDA-Public Use
  Company Number: CN-TELIGENT, INC-IGIL20170344

PATIENT
  Sex: Female

DRUGS (1)
  1. ZINACEF [Suspect]
     Active Substance: CEFUROXIME SODIUM
     Indication: CAESAREAN SECTION
     Route: 065
     Dates: start: 201706

REACTIONS (2)
  - Coma [Not Recovered/Not Resolved]
  - Anaphylactic shock [Not Recovered/Not Resolved]
